FAERS Safety Report 17414939 (Version 1)
Quarter: 2020Q1

REPORT INFORMATION
  Report Type: Spontaneous
  Country: CN (occurrence: CN)
  Receive Date: 20200213
  Receipt Date: 20200213
  Transmission Date: 20200409
  Serious: Yes (Hospitalization, Other)
  Sender: FDA-Public Use
  Company Number: CN-PFIZER INC-2020061260

PATIENT
  Age: 23 Year
  Sex: Female
  Weight: 47 kg

DRUGS (1)
  1. METHOTREXATE. [Suspect]
     Active Substance: METHOTREXATE
     Indication: ECTOPIC PREGNANCY
     Dosage: 75 MG, 1X/DAY
     Route: 030
     Dates: start: 20200130, end: 20200130

REACTIONS (13)
  - Pyrexia [Unknown]
  - Product use in unapproved indication [Unknown]
  - Renal impairment [Not Recovered/Not Resolved]
  - Hypophagia [Unknown]
  - Hypersensitivity [Not Recovered/Not Resolved]
  - Nausea [Recovering/Resolving]
  - Retching [Recovering/Resolving]
  - Vomiting [Unknown]
  - Mouth ulceration [Not Recovered/Not Resolved]
  - Rash pruritic [Not Recovered/Not Resolved]
  - Eyelid oedema [Not Recovered/Not Resolved]
  - Swelling face [Not Recovered/Not Resolved]
  - Off label use [Unknown]

NARRATIVE: CASE EVENT DATE: 20200130
